FAERS Safety Report 21816121 (Version 2)
Quarter: 2023Q2

REPORT INFORMATION
  Report Type: Report from Study
  Country: US (occurrence: US)
  Receive Date: 20230104
  Receipt Date: 20230403
  Transmission Date: 20230722
  Serious: No
  Sender: FDA-Public Use
  Company Number: US-ABBVIE-22K-163-4421316-00

PATIENT
  Sex: Female

DRUGS (3)
  1. HUMIRA [Suspect]
     Active Substance: ADALIMUMAB
     Indication: Crohn^s disease
     Dosage: CITARTE FREE?STRENGTH: 40 MILLIGRAM
     Route: 058
  2. HUMIRA [Suspect]
     Active Substance: ADALIMUMAB
     Dosage: CITARTE FREE
     Route: 058
     Dates: start: 20180627
  3. HUMIRA [Suspect]
     Active Substance: ADALIMUMAB
     Dosage: CITARTE FREE?STRENGTH: 40 MILLIGRAM
     Route: 058

REACTIONS (3)
  - Crohn^s disease [Not Recovered/Not Resolved]
  - Defaecation urgency [Not Recovered/Not Resolved]
  - Abnormal faeces [Not Recovered/Not Resolved]
